FAERS Safety Report 8878239 (Version 4)
Quarter: 2013Q4

REPORT INFORMATION
  Report Type: Report from Study
  Country: JP (occurrence: JP)
  Receive Date: 20121030
  Receipt Date: 20131106
  Transmission Date: 20140711
  Serious: Yes (Other)
  Sender: FDA-Public Use
  Company Number: JP-VERTEX PHARMACEUTICAL INC.-AE-2012-009266

PATIENT
  Age: 54 Year
  Sex: Female

DRUGS (16)
  1. VX-950 (TELAPREVIR) [Suspect]
     Indication: CHRONIC HEPATITIS C
     Dosage: 1500 MG, QD
     Route: 048
     Dates: start: 20120416, end: 20120422
  2. VX-950 (TELAPREVIR) [Suspect]
     Dosage: 1000 MG, QD
     Route: 048
     Dates: start: 20120423, end: 20120617
  3. VX-950 (TELAPREVIR) [Suspect]
     Dosage: 500 MG, QD
     Route: 048
     Dates: start: 20120618, end: 20120709
  4. RIBAVIRIN [Suspect]
     Indication: CHRONIC HEPATITIS C
     Dosage: 600 MG, QD
     Route: 048
     Dates: start: 20120416, end: 20120430
  5. RIBAVIRIN [Suspect]
     Dosage: 200 MG, QD
     Route: 048
     Dates: start: 20120501, end: 20120902
  6. RIBAVIRIN [Suspect]
     Dosage: 400 MG, QD
     Route: 048
     Dates: start: 20120903
  7. PEGINTERFERON ALFA-2B [Suspect]
     Indication: CHRONIC HEPATITIS C
     Dosage: 1.28 ?G/KG,QW
     Route: 058
     Dates: start: 20120416
  8. PARIET [Concomitant]
     Dosage: 10 MG, QD
     Route: 048
  9. MOHRUS [Concomitant]
     Dosage: Q.S./DAY, AS NEEDED
     Route: 062
     Dates: start: 20120425, end: 201205
  10. MUCOSTA [Concomitant]
     Dosage: 100 MG, PRN
     Route: 048
  11. TRANSAMIN [Concomitant]
     Dosage: 1C/DAY, PRN
     Route: 048
     Dates: start: 20120717, end: 201207
  12. LOXONIN [Concomitant]
     Dosage: 60 MG, PRN
     Route: 048
  13. MAGMITT [Concomitant]
     Dosage: 1500 MG, QD
     Route: 048
     Dates: end: 20120418
  14. MAGMITT [Concomitant]
     Dosage: 1500 MG, QD
     Route: 048
     Dates: start: 20120813
  15. LOXONIN TAPE [Concomitant]
     Dosage: QS
     Route: 062
     Dates: start: 20120723
  16. EURAX H [Concomitant]
     Dosage: UNK, QD PRN
     Route: 062
     Dates: end: 201205

REACTIONS (4)
  - White blood cell count decreased [Recovered/Resolved]
  - Neutrophil count decreased [Recovered/Resolved]
  - Renal impairment [Recovered/Resolved]
  - Cataract [Not Recovered/Not Resolved]
